FAERS Safety Report 7512246-4 (Version None)
Quarter: 2011Q2

REPORT INFORMATION
  Report Type: 
  Country: None (occurrence: None)
  Receive Date: 20110531
  Receipt Date: 20110516
  Transmission Date: 20111010
  Serious: Yes (Death)
  Sender: FDA-Public Use
  Company Number: US-ACTELION-A-US2011-48923

PATIENT

DRUGS (16)
  1. KLOR-CON [Concomitant]
  2. LIPITOR [Concomitant]
  3. SPIRIVA [Concomitant]
  4. DILTIAZEM [Concomitant]
  5. PLAQUENIL [Concomitant]
  6. HYDROCHLOROTHIAZIDE [Concomitant]
  7. IPRATROPIUM BROMIDE [Concomitant]
  8. OXYGEN [Concomitant]
  9. SYMBICORT [Concomitant]
  10. FUROSEMIDE [Concomitant]
  11. TRACLEER [Suspect]
     Indication: PULMONARY ARTERIAL HYPERTENSION
     Dosage: 125 MG, BID
     Route: 048
     Dates: start: 20110225, end: 20110430
  12. TRACLEER [Suspect]
     Dosage: 62.5 MG, BID
     Route: 048
     Dates: start: 20110126, end: 20110224
  13. ALBUTEROL SULFATE AUTOHALER [Concomitant]
  14. ASPIRIN [Concomitant]
  15. REMICADE [Concomitant]
  16. OMEPRAZOLE [Concomitant]

REACTIONS (1)
  - DEATH [None]
